FAERS Safety Report 5190362-2 (Version None)
Quarter: 2006Q4

REPORT INFORMATION
  Report Type: 
  Country: None (occurrence: None)
  Receive Date: 20061222
  Receipt Date: 20061127
  Transmission Date: 20070319
  Serious: Yes (Other)
  Sender: FDA-Public Use
  Company Number: PHNU2006DE03960

PATIENT
  Age: 55 Year
  Sex: Female

DRUGS (3)
  1. BONDRONAT [Suspect]
     Indication: BREAST CANCER FEMALE
     Dosage: 6 MG, QMO
     Route: 042
     Dates: start: 20060707, end: 20061026
  2. FEMARA [Suspect]
     Indication: BREAST CANCER
     Dosage: 2.5 MG, QD
     Route: 048
     Dates: start: 20060821
  3. TRAMADOL HCL [Concomitant]
     Dosage: 200 MG/DAY IF NEEDED
     Route: 048

REACTIONS (7)
  - ABDOMINAL PAIN [None]
  - ABDOMINAL PAIN UPPER [None]
  - ARTHRALGIA [None]
  - BONE PAIN [None]
  - MYALGIA [None]
  - PARAESTHESIA [None]
  - RENAL COLIC [None]
